FAERS Safety Report 20983517 (Version 2)
Quarter: 2022Q3

REPORT INFORMATION
  Report Type: Spontaneous
  Country: FR (occurrence: FR)
  Receive Date: 20220620
  Receipt Date: 20220704
  Transmission Date: 20221027
  Serious: Yes (Other)
  Sender: FDA-Public Use
  Company Number: FR-SANOFI-01096208

PATIENT
  Age: 76 Year
  Sex: Male
  Weight: 91 kg

DRUGS (3)
  1. KEVZARA [Suspect]
     Active Substance: SARILUMAB
     Dosage: UNK
     Dates: start: 202109
  2. METHOTREXATE [Suspect]
     Active Substance: METHOTREXATE
     Dosage: UNK
  3. COVID-19 VACCINE [Concomitant]
     Indication: Immunisation
     Dosage: UNK

REACTIONS (10)
  - Hypogammaglobulinaemia [Not Recovered/Not Resolved]
  - Epistaxis [Unknown]
  - Photosensitivity reaction [Unknown]
  - White blood cell count decreased [Unknown]
  - Vein disorder [Unknown]
  - General physical condition abnormal [Unknown]
  - Malaise [Unknown]
  - Lymphopenia [Not Recovered/Not Resolved]
  - Rheumatic disorder [Not Recovered/Not Resolved]
  - Immune system disorder [Unknown]
